FAERS Safety Report 5269681-7 (Version None)
Quarter: 2007Q1

REPORT INFORMATION
  Report Type: 
  Country: None (occurrence: None)
  Receive Date: 20070320
  Receipt Date: 20070316
  Transmission Date: 20070707
  Serious: Yes (Hospitalization)
  Sender: FDA-Public Use
  Company Number: US-BRISTOL-MYERS SQUIBB COMPANY-13717863

PATIENT
  Age: 36 Year
  Sex: Female
  Weight: 88 kg

DRUGS (7)
  1. KENALOG [Suspect]
     Indication: BACK INJURY
     Dates: start: 20070131, end: 20070207
  2. MOBIC [Concomitant]
     Dates: start: 20061101, end: 20070101
  3. PREVACID [Concomitant]
     Dates: start: 20070211, end: 20070216
  4. ACIPHEX [Concomitant]
     Dates: start: 20070216
  5. DARVOCET-N 100 [Concomitant]
     Dates: start: 20061101, end: 20070201
  6. ULTRAM [Concomitant]
     Indication: PAIN
     Dates: start: 20070201
  7. MULTIVITAMIN W/IRON [Concomitant]

REACTIONS (4)
  - BACK PAIN [None]
  - GASTROOESOPHAGEAL REFLUX DISEASE [None]
  - HYPOKALAEMIA [None]
  - MENSTRUAL DISORDER [None]
